FAERS Safety Report 6534208-6 (Version None)
Quarter: 2010Q1

REPORT INFORMATION
  Report Type: 
  Country: None (occurrence: None)
  Receive Date: 20100112
  Receipt Date: 20070808
  Transmission Date: 20100710
  Serious: Yes (Other)
  Sender: FDA-Public Use
  Company Number: PHHY2007BR01351

PATIENT
  Age: 80 Year
  Sex: Female

DRUGS (1)
  1. FORASEQ [Suspect]
     Indication: ASTHMA
     Dosage: UNK
     Dates: start: 20060101

REACTIONS (6)
  - ABASIA [None]
  - BALANCE DISORDER [None]
  - DIZZINESS [None]
  - LABYRINTHITIS [None]
  - PAIN [None]
  - SCIATIC NERVE NEUROPATHY [None]
